FAERS Safety Report 16693439 (Version 1)
Quarter: 2019Q3

REPORT INFORMATION
  Report Type: Spontaneous
  Country: DE (occurrence: DE)
  Receive Date: 20190812
  Receipt Date: 20190812
  Transmission Date: 20191004
  Serious: Yes (Congenital Anomaly, Other)
  Sender: FDA-Public Use
  Company Number: DE-TEVA-2019-DE-1090204

PATIENT
  Sex: Male

DRUGS (13)
  1. PANTOPRAZOL [Concomitant]
     Active Substance: PANTOPRAZOLE SODIUM
     Indication: PRODUCT USED FOR UNKNOWN INDICATION
     Dosage: 40 [MG/D ]
     Route: 064
     Dates: start: 20181002, end: 20181127
  2. DULCOLAX NOS [Concomitant]
     Active Substance: BISACODYL OR DOCUSATE SODIUM
     Indication: PRODUCT USED FOR UNKNOWN INDICATION
     Route: 064
     Dates: start: 20181002, end: 20190213
  3. TAVOR [Concomitant]
     Indication: RESTLESSNESS
     Route: 064
     Dates: start: 20181002, end: 20181127
  4. MCP [Concomitant]
     Active Substance: METOCLOPRAMIDE HYDROCHLORIDE
     Indication: NAUSEA
     Dosage: 20 [MG/D ] 2 SEPARATED DOSES
     Route: 064
     Dates: start: 20180922, end: 20181202
  5. ONDANSETRON [Concomitant]
     Active Substance: ONDANSETRON
     Indication: NAUSEA
     Dosage: 8 [MG/D ]
     Route: 064
     Dates: start: 20180922, end: 20181202
  6. HALDOL [Concomitant]
     Active Substance: HALOPERIDOL
     Indication: ANXIETY
     Route: 064
     Dates: start: 20181002, end: 20181127
  7. TEMOZOLOMIDE. [Suspect]
     Active Substance: TEMOZOLOMIDE
     Indication: ANAPLASTIC OLIGODENDROGLIOMA
     Dosage: 320 [MG/D ]/ 07/18 STARTING 6 CYCLES 5/28 DAYS, INITIAL 150MG/QM, THEN 200MG/QM
     Route: 064
     Dates: start: 20180922, end: 20181202
  8. SALBUTAMOL [Concomitant]
     Active Substance: ALBUTEROL
     Indication: PRODUCT USED FOR UNKNOWN INDICATION
     Route: 064
     Dates: start: 20181002, end: 20190108
  9. L-THYROXIN 100 [Concomitant]
     Active Substance: LEVOTHYROXINE SODIUM
     Indication: AUTOIMMUNE THYROIDITIS
     Dosage: 100 [?G/D ]
     Route: 064
     Dates: start: 20181002, end: 20190213
  10. FOLS?URE [Concomitant]
     Indication: VITAMIN SUPPLEMENTATION
     Route: 064
     Dates: start: 20190208, end: 20190208
  11. VITAMIN C WITH ZINC [Concomitant]
     Active Substance: ASCORBIC ACID\ZINC
     Indication: PRODUCT USED FOR UNKNOWN INDICATION
     Route: 064
     Dates: start: 20181002, end: 20190108
  12. VIGANTOLETTEN [Concomitant]
     Active Substance: CHOLECALCIFEROL
     Indication: PRODUCT USED FOR UNKNOWN INDICATION
     Route: 064
     Dates: start: 20181002, end: 20190213
  13. METHADONE [Concomitant]
     Active Substance: METHADONE HYDROCHLORIDE
     Indication: NAUSEA
     Route: 064
     Dates: start: 20180925, end: 20190213

REACTIONS (11)
  - Renal dysplasia [Not Recovered/Not Resolved]
  - Adactyly [Not Recovered/Not Resolved]
  - Foetal exposure during pregnancy [Unknown]
  - Pyelocaliectasis [Not Recovered/Not Resolved]
  - Microphthalmos [Not Recovered/Not Resolved]
  - Brachydactyly [Not Recovered/Not Resolved]
  - Skeletal dysplasia [Not Recovered/Not Resolved]
  - Syndactyly [Not Recovered/Not Resolved]
  - Hypotelorism of orbit [Not Recovered/Not Resolved]
  - Hygroma colli [Not Recovered/Not Resolved]
  - Microcephaly [Not Recovered/Not Resolved]
